FAERS Safety Report 10189567 (Version 1)
Quarter: 2014Q2

REPORT INFORMATION
  Report Type: Spontaneous
  Country: US (occurrence: US)
  Receive Date: 20140522
  Receipt Date: 20140522
  Transmission Date: 20141212
  Serious: No
  Sender: FDA-Public Use
  Company Number: US-AMGEN INC.-USASP2014033975

PATIENT
  Age: 85 Year
  Sex: Female

DRUGS (5)
  1. PROLIA [Suspect]
     Indication: OSTEOPOROSIS POSTMENOPAUSAL
     Dosage: UNK
     Route: 065
     Dates: start: 20120221
  2. CALCIUM [Concomitant]
  3. VITAMIN D                          /00107901/ [Concomitant]
  4. BABY ASPIRIN [Concomitant]
  5. VITAMIN B12                        /00056201/ [Concomitant]

REACTIONS (7)
  - Dizziness [Unknown]
  - Feeling abnormal [Recovering/Resolving]
  - Abdominal discomfort [Unknown]
  - Back pain [Unknown]
  - Fear [Unknown]
  - Gait disturbance [Unknown]
  - Vomiting [Unknown]
